FAERS Safety Report 10306239 (Version 2)
Quarter: 2014Q3

REPORT INFORMATION
  Report Type: Spontaneous
  Country: IT (occurrence: None)
  Receive Date: 20140711
  Receipt Date: 20140723
  Transmission Date: 20150326
  Serious: Yes (Other)
  Sender: FDA-Public Use
  Company Number: 2014-IT-008037

PATIENT
  Age: 32 Year
  Sex: Male

DRUGS (1)
  1. ERWINASE (ASPARAGINASE ERWINIA CHRYSANTHEMI) INJECTION [Suspect]
     Active Substance: ASPARAGINASE ERWINIA CHRYSANTHEMI
     Indication: B PRECURSOR TYPE ACUTE LEUKAEMIA
     Dosage: UNK

REACTIONS (1)
  - Hepatotoxicity [None]
